FAERS Safety Report 10899071 (Version 1)
Quarter: 2015Q1

REPORT INFORMATION
  Report Type: Spontaneous
  Country: NL (occurrence: NL)
  Receive Date: 20150309
  Receipt Date: 20150309
  Transmission Date: 20150721
  Serious: Yes (Hospitalization)
  Sender: FDA-Public Use
  Company Number: NL-TEVA-544980ISR

PATIENT
  Age: 56 Year
  Sex: Male
  Weight: 83 kg

DRUGS (6)
  1. NAPROXEN TABLET MSR 500MG [Concomitant]
     Indication: RHEUMATOID ARTHRITIS
     Dosage: 500MG, GASTRO-RESISTANT TABLET
     Route: 048
     Dates: start: 2014
  2. METHOTREXATE (METHOTREXATE SODIUM) [Suspect]
     Active Substance: METHOTREXATE SODIUM
     Indication: RHEUMATOID ARTHRITIS
     Dosage: 10MG/WEEK
     Route: 048
     Dates: start: 20021020, end: 201501
  3. ATORVASTATINE TABLET OMHULD 40MG (OUD) [Concomitant]
     Indication: CORONARY ARTERY DISEASE
     Dosage: 40MG
     Route: 048
     Dates: start: 2014
  4. FOLIUMZUUR TABLET 5MG [Concomitant]
     Active Substance: FOLIC ACID
     Dosage: 5MG/WEEK
     Route: 048
  5. CARBASALAATCALCIUM BRUISTABLET 100MG [Concomitant]
     Indication: CORONARY ARTERY DISEASE
     Dosage: 100MG, CHEWABLE/DISPERSIBLE TABLET
     Route: 048
     Dates: start: 201402
  6. ESOMEPRAZOL TABLET MSR 40MG [Concomitant]
     Indication: PROPHYLAXIS AGAINST GASTROINTESTINAL ULCER
     Dosage: 40MG, GASTRO-RESISTANT TABLET
     Route: 048
     Dates: start: 2011

REACTIONS (2)
  - Diverticular perforation [Unknown]
  - Diverticulitis [Unknown]

NARRATIVE: CASE EVENT DATE: 20150102
